FAERS Safety Report 16451817 (Version 3)
Quarter: 2019Q2

REPORT INFORMATION
  Report Type: Report from Study
  Country: US (occurrence: US)
  Receive Date: 20190619
  Receipt Date: 20190625
  Transmission Date: 20190711
  Serious: Yes (Hospitalization)
  Sender: FDA-Public Use
  Company Number: US-GILEAD-2019-0414051

PATIENT
  Age: 32 Year
  Sex: Female
  Weight: 62.59 kg

DRUGS (5)
  1. ADCIRCA [Concomitant]
     Active Substance: TADALAFIL
  2. ORENITRAM [Suspect]
     Active Substance: TREPROSTINIL
     Indication: PULMONARY ARTERIAL HYPERTENSION
     Dosage: 8 MG, Q8H
     Route: 048
     Dates: start: 20190605
  3. RAMAGILIN [Concomitant]
  4. AMBRISENTAN [Suspect]
     Active Substance: AMBRISENTAN
     Indication: PULMONARY ARTERIAL HYPERTENSION
     Dosage: 10 MG, QD
     Route: 065
     Dates: start: 20180822, end: 20190617
  5. ORENITRAM [Suspect]
     Active Substance: TREPROSTINIL
     Dosage: 8 UNK
     Route: 048
     Dates: start: 20190605

REACTIONS (7)
  - Hot flush [Not Recovered/Not Resolved]
  - Headache [Not Recovered/Not Resolved]
  - Nausea [Not Recovered/Not Resolved]
  - Orthopnoea [Not Recovered/Not Resolved]
  - Liver function test increased [Unknown]
  - Catheterisation cardiac [Unknown]
  - Weight decreased [Unknown]

NARRATIVE: CASE EVENT DATE: 20190603
